FAERS Safety Report 11322366 (Version 1)
Quarter: 2015Q3

REPORT INFORMATION
  Report Type: Spontaneous
  Country: US (occurrence: None)
  Receive Date: 20150728
  Receipt Date: 20150728
  Transmission Date: 20151125
  Serious: Yes (Death)
  Sender: FDA-Public Use
  Company Number: DEP_03240_2015

PATIENT
  Age: 54 Year
  Sex: Male
  Weight: 136.53 kg

DRUGS (13)
  1. LAZANDA [Suspect]
     Active Substance: FENTANYL CITRATE
     Indication: OFF LABEL USE
     Dosage: 2 SQUIRTS IN THE NOSTRILS FOUR TIMES A DAY, AS NEEDED
     Route: 045
     Dates: start: 20150515
  2. VALIUM [Suspect]
     Active Substance: DIAZEPAM
     Indication: PRODUCT USED FOR UNKNOWN INDICATION
     Dosage: INCREASED UP TO 10 MG TABLET, THREE TIMES A DAY ORAL
     Route: 048
  3. OPANA [Suspect]
     Active Substance: OXYMORPHONE HYDROCHLORIDE
     Indication: PRODUCT USED FOR UNKNOWN INDICATION
     Route: 048
  4. PAMELOR [Suspect]
     Active Substance: NORTRIPTYLINE HYDROCHLORIDE
     Indication: PRODUCT USED FOR UNKNOWN INDICATION
     Route: 048
  5. FENTORA [Suspect]
     Active Substance: FENTANYL CITRATE
     Indication: PAIN
     Route: 002
  6. CAMBIA [Suspect]
     Active Substance: DICLOFENAC POTASSIUM
     Indication: MIGRAINE
     Dosage: 50 MG, ONE UNIT BY MOUTH AT ONSET OF MIGRAINE ORAL
     Route: 048
  7. LAZANDA [Suspect]
     Active Substance: FENTANYL CITRATE
     Indication: PAIN
     Dosage: 2 SQUIRTS IN THE NOSTRILS FOUR TIMES A DAY, AS NEEDED
     Route: 045
     Dates: start: 20150515
  8. LUNESTA [Suspect]
     Active Substance: ESZOPICLONE
     Indication: PRODUCT USED FOR UNKNOWN INDICATION
     Route: 048
  9. HYDROCODONE BITARTRATE AND ACETAMINOPHEN [Suspect]
     Active Substance: ACETAMINOPHEN\HYDROCODONE BITARTRATE
     Indication: PRODUCT USED FOR UNKNOWN INDICATION
     Dosage: (HYDROCODONE 10 MG-ACETAMINOPHEN 325 MG, ONE TABLET THREE TIMES A DAY ORAL)
     Route: 048
  10. OXYCONTIN [Suspect]
     Active Substance: OXYCODONE HYDROCHLORIDE
     Indication: PAIN
     Dosage: INCREASED UP TO 40 MG TABLETS, ONE TABLET THREE TIMES A DAY
     Route: 048
  11. FIORICET [Suspect]
     Active Substance: ACETAMINOPHEN\BUTALBITAL\CAFFEINE
     Indication: PRODUCT USED FOR UNKNOWN INDICATION
     Dosage: 50 MG-325 MG-40 MG ORAL
     Route: 048
  12. BACLOFEN. [Suspect]
     Active Substance: BACLOFEN
     Indication: PRODUCT USED FOR UNKNOWN INDICATION
     Route: 048
  13. ZOLPIDEM [Suspect]
     Active Substance: ZOLPIDEM\ZOLPIDEM TARTRATE
     Indication: PRODUCT USED FOR UNKNOWN INDICATION
     Route: 048

REACTIONS (1)
  - Completed suicide [None]

NARRATIVE: CASE EVENT DATE: 20150519
